FAERS Safety Report 4332861-9 (Version None)
Quarter: 2004Q1

REPORT INFORMATION
  Report Type: 
  Country: None (occurrence: None)
  Receive Date: 20040330
  Receipt Date: 20040317
  Transmission Date: 20041129
  Serious: No
  Sender: FDA-Public Use
  Company Number: 04P-163-0253917-00

PATIENT
  Age: 40 Year
  Sex: Female

DRUGS (2)
  1. DEPAKOTE [Suspect]
     Indication: EPILEPSY
     Dosage: 250 MG, 5 IN 1 D, PER ORAL
     Route: 048
     Dates: start: 19840101
  2. CARBAMAZEPINE [Concomitant]

REACTIONS (3)
  - ABORTION SPONTANEOUS [None]
  - COMPLICATIONS OF MATERNAL EXPOSURE TO THERAPEUTIC DRUGS [None]
  - MATERNAL DRUGS AFFECTING FOETUS [None]
